FAERS Safety Report 8859954 (Version 1)
Quarter: 2012Q4

REPORT INFORMATION
  Report Type: Report from Study
  Country: US (occurrence: US)
  Receive Date: 20121025
  Receipt Date: 20121025
  Transmission Date: 20130627
  Serious: Yes (Hospitalization, Other)
  Sender: FDA-Public Use
  Company Number: US-ABBOTT-12P-163-0997367-00

PATIENT
  Age: 56 Year
  Sex: Female
  Weight: 82.17 kg

DRUGS (7)
  1. HUMIRA [Suspect]
     Indication: CROHN^S DISEASE
     Dates: start: 20120821
  2. LIALDA [Concomitant]
     Indication: PRODUCT USED FOR UNKNOWN INDICATION
  3. LIPITOR [Concomitant]
     Indication: PRODUCT USED FOR UNKNOWN INDICATION
  4. LORATADINE [Concomitant]
     Indication: PRODUCT USED FOR UNKNOWN INDICATION
  5. IRON [Concomitant]
     Indication: PRODUCT USED FOR UNKNOWN INDICATION
  6. LISINOPRIL [Concomitant]
     Indication: PRODUCT USED FOR UNKNOWN INDICATION
  7. DIMENHYDRINATE [Concomitant]
     Indication: PRODUCT USED FOR UNKNOWN INDICATION

REACTIONS (9)
  - Pyrexia [Recovered/Resolved]
  - Clostridium difficile infection [Recovered/Resolved]
  - Diarrhoea [Recovered/Resolved]
  - Anaemia [Recovered/Resolved]
  - Paranasal sinus hypersecretion [Unknown]
  - Hypotension [Recovered/Resolved]
  - Pyrexia [Recovered/Resolved]
  - Scar [Unknown]
  - Rash papular [Recovered/Resolved]
